FAERS Safety Report 10114477 (Version 2)
Quarter: 2014Q2

REPORT INFORMATION
  Report Type: Spontaneous
  Country: BE (occurrence: NL)
  Receive Date: 20140426
  Receipt Date: 20140426
  Transmission Date: 20141212
  Serious: Yes (Other)
  Sender: FDA-Public Use
  Company Number: BE-ROCHE-1383534

PATIENT
  Age: 31 Year
  Sex: Male

DRUGS (3)
  1. XELODA [Suspect]
     Indication: COLORECTAL CANCER METASTATIC
     Dosage: 112 TABLETS IN 14 DAYS
     Route: 048
     Dates: start: 20140226
  2. AVASTIN [Suspect]
     Indication: COLORECTAL CANCER METASTATIC
     Route: 042
     Dates: start: 20140226
  3. OXALIPLATIN [Suspect]
     Indication: COLORECTAL CANCER METASTATIC
     Route: 042
     Dates: start: 20140226

REACTIONS (4)
  - Muscle spasms [Recovering/Resolving]
  - Paraesthesia [Unknown]
  - Vomiting [Recovered/Resolved]
  - Sensation of foreign body [Unknown]
